FAERS Safety Report 8331737-X (Version None)
Quarter: 2012Q2

REPORT INFORMATION
  Report Type: 
  Country: None (occurrence: None)
  Receive Date: 20120502
  Receipt Date: 20120420
  Transmission Date: 20120825
  Serious: No
  Sender: FDA-Public Use
  Company Number: US-AMGEN-USASP2011054920

PATIENT
  Age: 48 Year
  Sex: Female

DRUGS (1)
  1. ENBREL [Suspect]
     Indication: RHEUMATOID ARTHRITIS
     Dosage: 50 MG, QWK
     Dates: start: 20111012, end: 20111022

REACTIONS (5)
  - ERYTHEMA [None]
  - URTICARIA [None]
  - ADVERSE DRUG REACTION [None]
  - RASH ERYTHEMATOUS [None]
  - BURNING SENSATION [None]
